FAERS Safety Report 4993934-0 (Version None)
Quarter: 2006Q2

REPORT INFORMATION
  Report Type: 
  Country: None (occurrence: None)
  Receive Date: 20060505
  Receipt Date: 20060322
  Transmission Date: 20061013
  Serious: Yes (Other)
  Sender: FDA-Public Use
  Company Number: US-GLAXOSMITHKLINE-A0598634A

PATIENT
  Age: 63 Year
  Sex: Male

DRUGS (14)
  1. AVANDIA [Suspect]
     Indication: DIABETES MELLITUS NON-INSULIN-DEPENDENT
     Dosage: 8MG UNKNOWN
     Route: 048
  2. TRIAL MEDICATION [Suspect]
     Indication: PROSTATIC DISORDER
     Route: 048
  3. NORVASC [Suspect]
     Indication: BLOOD PRESSURE
     Dosage: 10MG PER DAY
     Route: 065
  4. GLUCOPHAGE [Suspect]
     Indication: DIABETES MELLITUS NON-INSULIN-DEPENDENT
     Dosage: 850MG TWICE PER DAY
     Route: 065
  5. LOTENSIN [Concomitant]
     Indication: BLOOD PRESSURE
     Dosage: 20MG PER DAY
  6. ZOCOR [Concomitant]
     Indication: BLOOD CHOLESTEROL
     Dosage: 80MG PER DAY
  7. DIOVAN HCT [Concomitant]
     Indication: BLOOD PRESSURE
     Dosage: 2UNIT PER DAY
  8. STARLIX [Concomitant]
     Indication: DIABETES MELLITUS
     Dosage: 120MG THREE TIMES PER DAY
  9. FLOMAX [Concomitant]
     Indication: DYSURIA
     Dosage: .4MG AT NIGHT
  10. MULTI-VITAMIN [Concomitant]
     Dosage: .5UNIT PER DAY
  11. ASPIRIN [Concomitant]
     Dosage: 81MG PER DAY
  12. METAMUCIL [Concomitant]
  13. MAGNESIUM CITRATE [Concomitant]
  14. MINERAL TAB [Concomitant]

REACTIONS (16)
  - ABDOMINAL DISTENSION [None]
  - ADVERSE EVENT [None]
  - ALOPECIA [None]
  - BLOOD GLUCOSE FLUCTUATION [None]
  - COUGH [None]
  - FLUID RETENTION [None]
  - HAIR GROWTH ABNORMAL [None]
  - LACRIMATION INCREASED [None]
  - MULTIPLE ALLERGIES [None]
  - NASOPHARYNGEAL DISORDER [None]
  - NEUROPATHY [None]
  - SINUS DISORDER [None]
  - SWELLING [None]
  - THROAT IRRITATION [None]
  - VISUAL DISTURBANCE [None]
  - WEIGHT INCREASED [None]
